FAERS Safety Report 4393259-0 (Version None)
Quarter: 2004Q3

REPORT INFORMATION
  Report Type: 
  Country: None (occurrence: None)
  Receive Date: 20040701
  Receipt Date: 20040616
  Transmission Date: 20050211
  Serious: Yes (Hospitalization)
  Sender: FDA-Public Use
  Company Number: DE-2004-027128

PATIENT
  Age: 37 Year
  Sex: Female

DRUGS (3)
  1. BETAFERON (INTERFERON BETA - 1B) INJECTION, 250UG [Suspect]
     Indication: MULTIPLE SCLEROSIS
     Dosage: SUBCUTANEOUS
     Route: 058
     Dates: start: 20020501
  2. URBASON(METHYLPREDNISOLONE) [Suspect]
     Dosage: 500 MG, 1X/DAY, INTRAVENOUS
     Route: 042
     Dates: start: 20040609, end: 20040612
  3. TRINOVUM [Concomitant]

REACTIONS (1)
  - CEREBRAL VENOUS THROMBOSIS [None]
